FAERS Safety Report 26027207 (Version 1)
Quarter: 2025Q4

REPORT INFORMATION
  Report Type: Spontaneous
  Country: GB (occurrence: None)
  Receive Date: 20251110
  Receipt Date: 20251110
  Transmission Date: 20260117
  Serious: Yes (Disabling)
  Sender: FDA-CTU
  Company Number: None

PATIENT
  Age: 74 Year
  Sex: Female
  Weight: 66.15 kg

DRUGS (1)
  1. DEEP FREEZE COOL THERAPY PAIN RELIEF [Suspect]
     Active Substance: MENTHOL
     Indication: Muscle disorder
     Dosage: 1 SPRAY(S) AS NEEDED TOPICAL
     Route: 061
     Dates: start: 20250811, end: 20250811

REACTIONS (6)
  - Product odour abnormal [None]
  - Headache [None]
  - Nausea [None]
  - Dizziness [None]
  - Blepharospasm [None]
  - Coordination abnormal [None]

NARRATIVE: CASE EVENT DATE: 20251109
